FAERS Safety Report 7521689-4 (Version None)
Quarter: 2011Q2

REPORT INFORMATION
  Report Type: 
  Country: None (occurrence: None)
  Receive Date: 20110524
  Receipt Date: 20110511
  Transmission Date: 20111010
  Serious: Yes (Other)
  Sender: FDA-Public Use
  Company Number: 2010P1002926

PATIENT
  Age: 76 Year
  Sex: Male
  Weight: 99.7913 kg

DRUGS (13)
  1. NIACIN [Concomitant]
  2. FENTANYL [Suspect]
     Indication: BACK DISORDER
     Dosage: 1 PATCH, Q2D, TDER
     Route: 062
     Dates: start: 20100901, end: 20101128
  3. FENTANYL [Suspect]
     Indication: BACK PAIN
     Dosage: 1 PATCH, Q2D, TDER
     Route: 062
     Dates: start: 20100901, end: 20101128
  4. LISINOPRIL [Concomitant]
  5. FENTANYL [Suspect]
     Indication: BACK DISORDER
     Dosage: 1 PATCH, Q2D, TDER
     Route: 062
     Dates: start: 20100901, end: 20101128
  6. FENTANYL [Suspect]
     Indication: BACK PAIN
     Dosage: 1 PATCH, Q2D, TDER
     Route: 062
     Dates: start: 20100901, end: 20101128
  7. HYDROCODONE 10/500 [Concomitant]
  8. MORPHINE [Concomitant]
  9. ASPIRIN [Concomitant]
  10. LANSOPRAZOLE [Concomitant]
  11. CARVEDILOL [Concomitant]
  12. AMOXICILLIN [Concomitant]
  13. VYTORIN [Concomitant]

REACTIONS (15)
  - TREMOR [None]
  - NAUSEA [None]
  - VOMITING [None]
  - BLOOD PRESSURE DECREASED [None]
  - DRUG INEFFECTIVE [None]
  - ABDOMINAL DISCOMFORT [None]
  - CARDIAC DISORDER [None]
  - NERVOUSNESS [None]
  - DIARRHOEA [None]
  - NECK PAIN [None]
  - CHILLS [None]
  - DEHYDRATION [None]
  - FEELING ABNORMAL [None]
  - HEADACHE [None]
  - HYPERHIDROSIS [None]
